FAERS Safety Report 20411487 (Version 7)
Quarter: 2023Q1

REPORT INFORMATION
  Report Type: Report from Study
  Country: CA (occurrence: CA)
  Receive Date: 20220201
  Receipt Date: 20230105
  Transmission Date: 20230418
  Serious: Yes (Other)
  Sender: FDA-Public Use
  Company Number: CA-TAKEDA-2022TUS004446

PATIENT
  Age: 42 Year
  Sex: Male
  Weight: 97.3 kg

DRUGS (31)
  1. TEDUGLUTIDE [Suspect]
     Active Substance: TEDUGLUTIDE
     Indication: Short-bowel syndrome
     Dosage: 4.66 MILLIGRAM, QD
     Route: 042
     Dates: start: 20220118
  2. TEDUGLUTIDE [Suspect]
     Active Substance: TEDUGLUTIDE
     Indication: Short-bowel syndrome
     Dosage: 4.66 MILLIGRAM, QD
     Route: 042
     Dates: start: 20220118
  3. TEDUGLUTIDE [Suspect]
     Active Substance: TEDUGLUTIDE
     Indication: Short-bowel syndrome
     Dosage: 4.66 MILLIGRAM, QD
     Route: 042
     Dates: start: 20220118
  4. TEDUGLUTIDE [Suspect]
     Active Substance: TEDUGLUTIDE
     Indication: Short-bowel syndrome
     Dosage: 4.66 MILLIGRAM, QD
     Route: 042
     Dates: start: 20220118
  5. TEDUGLUTIDE [Suspect]
     Active Substance: TEDUGLUTIDE
     Dosage: 4.66 MILLIGRAM, QD
     Route: 042
     Dates: start: 20220118
  6. TEDUGLUTIDE [Suspect]
     Active Substance: TEDUGLUTIDE
     Dosage: 4.66 MILLIGRAM, QD
     Route: 042
     Dates: start: 20220118
  7. TEDUGLUTIDE [Suspect]
     Active Substance: TEDUGLUTIDE
     Dosage: 4.66 MILLIGRAM, QD
     Route: 042
     Dates: start: 20220118
  8. TEDUGLUTIDE [Suspect]
     Active Substance: TEDUGLUTIDE
     Dosage: 4.66 MILLIGRAM, QD
     Route: 042
     Dates: start: 20220118
  9. TEDUGLUTIDE [Suspect]
     Active Substance: TEDUGLUTIDE
     Dosage: 4.66 MILLIGRAM, QD
     Route: 058
     Dates: start: 20220118
  10. TEDUGLUTIDE [Suspect]
     Active Substance: TEDUGLUTIDE
     Dosage: 4.66 MILLIGRAM, QD
     Route: 058
     Dates: start: 20220118
  11. TEDUGLUTIDE [Suspect]
     Active Substance: TEDUGLUTIDE
     Dosage: 4.66 MILLIGRAM, QD
     Route: 058
     Dates: start: 20220118
  12. TEDUGLUTIDE [Suspect]
     Active Substance: TEDUGLUTIDE
     Dosage: 4.66 MILLIGRAM, QD
     Route: 058
     Dates: start: 20220118
  13. TEDUGLUTIDE [Suspect]
     Active Substance: TEDUGLUTIDE
     Dosage: 4.87 MILLIGRAM, QD
     Route: 058
     Dates: start: 20220118
  14. TEDUGLUTIDE [Suspect]
     Active Substance: TEDUGLUTIDE
     Dosage: 4.87 MILLIGRAM, QD
     Route: 058
     Dates: start: 20220118
  15. TEDUGLUTIDE [Suspect]
     Active Substance: TEDUGLUTIDE
     Dosage: 4.87 MILLIGRAM, QD
     Route: 058
     Dates: start: 20220118
  16. TEDUGLUTIDE [Suspect]
     Active Substance: TEDUGLUTIDE
     Dosage: 4.87 MILLIGRAM, QD
     Route: 058
     Dates: start: 20220118
  17. TEDUGLUTIDE [Suspect]
     Active Substance: TEDUGLUTIDE
     Dosage: 4.87 MILLIGRAM, QD
     Route: 050
     Dates: start: 20220118
  18. TEDUGLUTIDE [Suspect]
     Active Substance: TEDUGLUTIDE
     Dosage: 4.87 MILLIGRAM, QD
     Route: 050
     Dates: start: 20220118
  19. TEDUGLUTIDE [Suspect]
     Active Substance: TEDUGLUTIDE
     Dosage: 4.87 MILLIGRAM, QD
     Route: 050
     Dates: start: 20220118
  20. TEDUGLUTIDE [Suspect]
     Active Substance: TEDUGLUTIDE
     Dosage: 4.87 MILLIGRAM, QD
     Route: 050
     Dates: start: 20220118
  21. TEDUGLUTIDE [Suspect]
     Active Substance: TEDUGLUTIDE
     Dosage: 4.3 MILLIGRAM, QD
     Route: 065
     Dates: start: 20220202
  22. TEDUGLUTIDE [Suspect]
     Active Substance: TEDUGLUTIDE
     Dosage: 4.3 MILLIGRAM, QD
     Route: 065
     Dates: start: 20220202
  23. TEDUGLUTIDE [Suspect]
     Active Substance: TEDUGLUTIDE
     Dosage: 4.3 MILLIGRAM, QD
     Route: 065
     Dates: start: 20220202
  24. TEDUGLUTIDE [Suspect]
     Active Substance: TEDUGLUTIDE
     Dosage: 4.3 MILLIGRAM, QD
     Route: 065
     Dates: start: 20220202
  25. TPN [Concomitant]
     Active Substance: AMINO ACIDS\DEXTROSE\ELECTROLYTES NOS\SOYBEAN OIL
     Dosage: 2000 MILLILITER, QOD
     Route: 065
  26. TPN [Concomitant]
     Active Substance: AMINO ACIDS\DEXTROSE\ELECTROLYTES NOS\SOYBEAN OIL
     Dosage: 8000 MILLILITER, 1/WEEK
     Route: 065
  27. STELARA [Concomitant]
     Active Substance: USTEKINUMAB
     Dosage: UNK
     Route: 065
  28. CODEINE [Concomitant]
     Active Substance: CODEINE
     Dosage: 30 MILLIGRAM, QID
  29. CODEINE [Concomitant]
     Active Substance: CODEINE
     Dosage: 60 MILLIGRAM, QID
  30. VITAMIN D NOS [Concomitant]
     Active Substance: VITAMIN D NOS
     Dosage: UNK
  31. SODIUM CHLORIDE [Concomitant]
     Active Substance: SODIUM CHLORIDE
     Dosage: 1000 MILLILITER
     Route: 065

REACTIONS (9)
  - Stoma obstruction [Not Recovered/Not Resolved]
  - Gastrointestinal stoma output increased [Not Recovered/Not Resolved]
  - Nocturia [Unknown]
  - Weight increased [Not Recovered/Not Resolved]
  - Pollakiuria [Unknown]
  - Abnormal faeces [Unknown]
  - Muscle spasms [Recovered/Resolved]
  - Product physical issue [Unknown]
  - Incorrect dose administered [Unknown]

NARRATIVE: CASE EVENT DATE: 20220119
